FAERS Safety Report 23056346 (Version 1)
Quarter: 2023Q4

REPORT INFORMATION
  Report Type: Other
  Country: CA (occurrence: CA)
  Receive Date: 20231011
  Receipt Date: 20231011
  Transmission Date: 20240109
  Serious: Yes (Disabling, Other)
  Sender: FDA-Public Use
  Company Number: CA-PFIZER INC-202300322127

PATIENT
  Sex: Female

DRUGS (2)
  1. HYDROMORPHONE HYDROCHLORIDE [Suspect]
     Active Substance: HYDROMORPHONE HYDROCHLORIDE
     Indication: Drug use disorder
     Dosage: UNK
     Route: 042
  2. FENTANYL [Suspect]
     Active Substance: FENTANYL
     Indication: Drug use disorder
     Dosage: UNK
     Route: 042

REACTIONS (5)
  - Exposure during pregnancy [Unknown]
  - Haemorrhage [Unknown]
  - Hypertension [Unknown]
  - Seizure [Unknown]
  - Drug use disorder [Unknown]
